FAERS Safety Report 6667026-9 (Version None)
Quarter: 2010Q2

REPORT INFORMATION
  Report Type: 
  Country: None (occurrence: None)
  Receive Date: 20100402
  Receipt Date: 20100402
  Transmission Date: 20101027
  Serious: Yes (Hospitalization)
  Sender: FDA-Public Use
  Company Number: None

PATIENT

DRUGS (1)
  1. WATERWORKS DOUCHE NONE NONE [Suspect]

REACTIONS (2)
  - PELVIC INFLAMMATORY DISEASE [None]
  - VAGINITIS BACTERIAL [None]
